FAERS Safety Report 23897186 (Version 2)
Quarter: 2024Q3

REPORT INFORMATION
  Report Type: Spontaneous
  Country: US (occurrence: US)
  Receive Date: 20240524
  Receipt Date: 20240711
  Transmission Date: 20241016
  Serious: Yes (Hospitalization)
  Sender: CALLIDITAS THERAPEUTICS
  Company Number: US-Calliditas-2024CAL00806

PATIENT
  Age: 63 Year
  Sex: Female
  Weight: 88 kg

DRUGS (15)
  1. TARPEYO [Suspect]
     Active Substance: BUDESONIDE
     Indication: IgA nephropathy
     Route: 048
     Dates: start: 20231230
  2. AMLODIPINE [Concomitant]
     Active Substance: AMLODIPINE BESYLATE
  3. DUPIXENT [Concomitant]
     Active Substance: DUPILUMAB
  4. FLUOXETINE [Concomitant]
     Active Substance: FLUOXETINE HYDROCHLORIDE
  5. GEMFIBROZIL [Concomitant]
     Active Substance: GEMFIBROZIL
  6. HYDRALAZINE [Concomitant]
     Active Substance: HYDRALAZINE HYDROCHLORIDE
  7. KERENDIA [Concomitant]
     Active Substance: FINERENONE
  8. LEVEMIR [Concomitant]
     Active Substance: INSULIN DETEMIR
  9. LEVOTHYROXINE [Concomitant]
     Active Substance: LEVOTHYROXINE\LEVOTHYROXINE SODIUM
  10. LOSARTAN [Concomitant]
     Active Substance: LOSARTAN
  11. METFORMIN [Concomitant]
     Active Substance: METFORMIN HYDROCHLORIDE
  12. PANTOPRAZOLE [Concomitant]
     Active Substance: PANTOPRAZOLE
  13. SIMVASTATIN [Concomitant]
     Active Substance: SIMVASTATIN
  14. VELTASSA [Concomitant]
     Active Substance: PATIROMER
  15. HYDROXYZINE [Concomitant]
     Active Substance: HYDROXYZINE HYDROCHLORIDE

REACTIONS (3)
  - Anaemia [Recovering/Resolving]
  - Oedema peripheral [Unknown]
  - Drug ineffective [Unknown]

NARRATIVE: CASE EVENT DATE: 20240401
